FAERS Safety Report 8901335 (Version 1)
Quarter: 2012Q4

REPORT INFORMATION
  Report Type: 
  Country: GB (occurrence: GB)
  Receive Date: 20121109
  Receipt Date: 20121109
  Transmission Date: 20130627
  Serious: Yes (Disabling)
  Sender: FDA-Public Use
  Company Number: GB-JNJFOC-20121103351

PATIENT
  Age: 79 Year
  Sex: Female
  Weight: 85 kg

DRUGS (4)
  1. XARELTO [Suspect]
     Indication: POSTOPERATIVE CARE
     Route: 048
     Dates: start: 20120309
  2. SIMVASTATIN [Concomitant]
     Route: 065
  3. LISINOPRIL [Concomitant]
     Route: 065
  4. GABAPENTIN [Concomitant]
     Route: 065

REACTIONS (2)
  - Hypotension [Recovered/Resolved]
  - Haemoglobin decreased [Recovered/Resolved]
